FAERS Safety Report 11373826 (Version 1)
Quarter: 2015Q3

REPORT INFORMATION
  Report Type: Spontaneous
  Country: US (occurrence: None)
  Receive Date: 20150811
  Receipt Date: 20150811
  Transmission Date: 20151125
  Serious: Yes (Hospitalization)
  Sender: FDA-Public Use
  Company Number: IPC201507-000509

PATIENT
  Age: 73 Year
  Sex: Female

DRUGS (1)
  1. HYDROCHLOROTHIAZIDE 12.5 MG CAPSULES [Suspect]
     Active Substance: HYDROCHLOROTHIAZIDE

REACTIONS (5)
  - Dizziness [None]
  - Blindness [None]
  - Dehydration [None]
  - Blood pressure increased [None]
  - Blood potassium decreased [None]
